FAERS Safety Report 9402996 (Version 1)
Quarter: 2013Q3

REPORT INFORMATION
  Report Type: Spontaneous
  Country: US (occurrence: US)
  Receive Date: 20130716
  Receipt Date: 20130716
  Transmission Date: 20140515
  Serious: Yes (Hospitalization, Other)
  Sender: FDA-Public Use
  Company Number: US-BAYER-2013-085315

PATIENT
  Age: 23 Year
  Sex: Female

DRUGS (7)
  1. YASMIN [Suspect]
  2. NAPROXEN SODIUM [Concomitant]
     Dosage: 550 MG, TWICE DAILY
     Route: 048
     Dates: start: 20041023
  3. LEXAPRO [Concomitant]
     Dosage: 20 MG, DAILY
     Route: 048
     Dates: start: 20041111
  4. LEXAPRO [Concomitant]
     Dosage: 20 MG, DAILY
     Route: 048
     Dates: start: 20050914
  5. ADDERALL XR [Concomitant]
     Dosage: 15 MG, DAILY
     Route: 048
     Dates: start: 20041111
  6. FLUCONAZOLE [Concomitant]
     Dosage: 150 MG, UNK
     Route: 048
     Dates: start: 20041122
  7. ZYRTEC-D [Concomitant]
     Dosage: UNK, TWICE DAILY
     Route: 048
     Dates: start: 20051019

REACTIONS (4)
  - Pulmonary embolism [Recovered/Resolved]
  - Deep vein thrombosis [Recovered/Resolved]
  - Cholelithiasis [None]
  - Deep vein thrombosis [None]
